FAERS Safety Report 4299324-0 (Version None)
Quarter: 2004Q1

REPORT INFORMATION
  Report Type: 
  Country: None (occurrence: None)
  Receive Date: 20040219
  Receipt Date: 20031119
  Transmission Date: 20041129
  Serious: No
  Sender: FDA-Public Use
  Company Number: US-GLAXOSMITHKLINE-A0440345A

PATIENT
  Age: 55 Year
  Sex: Female

DRUGS (7)
  1. LOTRONEX [Suspect]
     Indication: IRRITABLE BOWEL SYNDROME
     Dosage: 1MG PER DAY
     Route: 048
     Dates: start: 20031101, end: 20031118
  2. PROZAC [Concomitant]
  3. KLONOPIN [Concomitant]
  4. TRAZODONE HCL [Concomitant]
  5. COMBIVENT [Concomitant]
  6. PULMICORT [Concomitant]
  7. AMITRIPTYLINE [Concomitant]

REACTIONS (2)
  - EPISTAXIS [None]
  - PALPITATIONS [None]
